FAERS Safety Report 8614178-7 (Version None)
Quarter: 2012Q3

REPORT INFORMATION
  Report Type: 
  Country: None (occurrence: None)
  Receive Date: 20120813
  Receipt Date: 20120813
  Transmission Date: 20120928
  Serious: Yes (Other)
  Sender: FDA-Public Use
  Company Number: None

PATIENT
  Sex: Female

DRUGS (3)
  1. NAPROXEN SODIUM [Suspect]
     Indication: INTERVERTEBRAL DISC DISORDER
     Dosage: 550MG 12HRS PO
     Route: 048
  2. NAPROXEN SODIUM [Suspect]
     Indication: BACK PAIN
     Dosage: 550MG 12HRS PO
     Route: 048
  3. NAPROXEN SODIUM [Suspect]
     Indication: ARTHRITIS
     Dosage: 550MG 12HRS PO
     Route: 048

REACTIONS (3)
  - PRODUCT SUBSTITUTION ISSUE [None]
  - ECONOMIC PROBLEM [None]
  - NO THERAPEUTIC RESPONSE [None]
